FAERS Safety Report 12484809 (Version 1)
Quarter: 2016Q2

REPORT INFORMATION
  Report Type: Spontaneous
  Country: US (occurrence: US)
  Receive Date: 20160621
  Receipt Date: 20160621
  Transmission Date: 20160815
  Serious: No
  Sender: FDA-Public Use
  Company Number: US-WATSON-2016-06269

PATIENT
  Age: 72 Year
  Sex: Female

DRUGS (5)
  1. NABUMETONE (WATSON LABORATORIES) [Suspect]
     Active Substance: NABUMETONE
     Indication: OSTEOARTHRITIS
     Dosage: 750 MG, BID
     Route: 048
  2. NABUMETONE (WATSON LABORATORIES) [Suspect]
     Active Substance: NABUMETONE
     Indication: PAIN
     Dosage: 750 MG, DAILY
     Route: 048
  3. HYDROCHLOROTHIAZIDE. [Concomitant]
     Active Substance: HYDROCHLOROTHIAZIDE
     Indication: HYPERTENSION
     Dosage: UNK, UNKNOWN
     Route: 048
  4. TOPAMAX [Concomitant]
     Active Substance: TOPIRAMATE
     Indication: PAIN
     Dosage: UNK, UNKNOWN
     Route: 048
  5. PRAVASTATIN [Concomitant]
     Active Substance: PRAVASTATIN\PRAVASTATIN SODIUM
     Indication: BLOOD CHOLESTEROL INCREASED
     Dosage: UNK, UNKNOWN
     Route: 048

REACTIONS (1)
  - Epistaxis [Not Recovered/Not Resolved]
